FAERS Safety Report 8438221-3 (Version None)
Quarter: 2012Q2

REPORT INFORMATION
  Report Type: 
  Country: None (occurrence: None)
  Receive Date: 20120614
  Receipt Date: 20120608
  Transmission Date: 20120825
  Serious: Yes (Hospitalization)
  Sender: FDA-Public Use
  Company Number: FR-PFIZER INC-2012137771

PATIENT
  Age: 75 Year
  Sex: Female

DRUGS (12)
  1. ATENOLOL [Concomitant]
  2. AMOXICILLIN AND CLAVULANATE POTASSIUM [Suspect]
     Indication: ERYSIPELAS
     Dosage: 1 G, 4X/DAY
     Route: 042
     Dates: start: 20111218, end: 20111223
  3. AMOXICILLIN AND CLAVULANATE POTASSIUM [Suspect]
     Dosage: 1 G, 4X/DAY
     Route: 042
     Dates: start: 20111230, end: 20120110
  4. AMLODIPINE BESYLATE [Concomitant]
  5. AMOXICILLIN TRIHYDRATE [Concomitant]
     Dosage: 3 G, 3X/DAY
     Dates: start: 20111216
  6. CLINDAMYCIN HCL [Suspect]
     Indication: ERYSIPELAS
     Dosage: 600 MG, 3X/DAY
     Route: 048
     Dates: start: 20111220, end: 20120110
  7. ASPIRIN [Concomitant]
  8. TANGANIL [Concomitant]
  9. FENOFIBRATE [Concomitant]
  10. AMOXICILLIN TRIHYDRATE [Concomitant]
     Dosage: 1 G, 4X/DAY
  11. CALCIUM CARBONATE [Concomitant]
  12. ESIDRIX [Concomitant]

REACTIONS (1)
  - TOXIC SKIN ERUPTION [None]
